FAERS Safety Report 6530082-2 (Version None)
Quarter: 2009Q4

REPORT INFORMATION
  Report Type: 
  Country: None (occurrence: None)
  Receive Date: 20091231
  Receipt Date: 20091218
  Transmission Date: 20100525
  Serious: Yes (Hospitalization, Other)
  Sender: FDA-Public Use
  Company Number: AUR-APL-2009-01628

PATIENT
  Age: 66 Year
  Sex: Male

DRUGS (2)
  1. BISOPROLOL FUMARATE [Suspect]
     Indication: VENTRICULAR TACHYCARDIA
  2. AMIODARONE HCL [Suspect]
     Indication: VENTRICULAR TACHYCARDIA
     Dosage: 400MG, DAILY

REACTIONS (3)
  - HYPOTENSION [None]
  - INADEQUATE DIET [None]
  - VENTRICULAR TACHYCARDIA [None]
